FAERS Safety Report 21887653 (Version 1)
Quarter: 2023Q1

REPORT INFORMATION
  Report Type: Spontaneous
  Country: US (occurrence: US)
  Receive Date: 20230120
  Receipt Date: 20230120
  Transmission Date: 20230417
  Serious: No
  Sender: FDA-Public Use
  Company Number: US-STRIDES ARCOLAB LIMITED-2022SP011862

PATIENT
  Age: 64 Year
  Sex: Female

DRUGS (1)
  1. METHOTREXATE [Suspect]
     Active Substance: METHOTREXATE
     Indication: Idiopathic orbital inflammation
     Dosage: 20 MILLIGRAM, ONCE A WEEK
     Route: 065

REACTIONS (2)
  - Hypoaesthesia [Recovered/Resolved]
  - Off label use [Unknown]
